FAERS Safety Report 16534066 (Version 1)
Quarter: 2019Q3

REPORT INFORMATION
  Report Type: Report from Study
  Country: BR (occurrence: BR)
  Receive Date: 20190704
  Receipt Date: 20190704
  Transmission Date: 20191004
  Serious: Yes (Death, Hospitalization, Other)
  Sender: FDA-Public Use
  Company Number: BR-ELI_LILLY_AND_COMPANY-BR201906005703

PATIENT
  Sex: Female

DRUGS (2)
  1. ENTRESTO [Concomitant]
     Active Substance: SACUBITRIL\VALSARTAN
     Indication: CARDIAC DISORDER
     Dosage: UNK, UNKNOWN
     Route: 065
  2. TERIPARATIDE [Suspect]
     Active Substance: TERIPARATIDE
     Indication: PRODUCT USED FOR UNKNOWN INDICATION
     Dosage: UNK, UNKNOWN
     Route: 065
     Dates: start: 2018

REACTIONS (20)
  - Seizure [Recovered/Resolved]
  - Pain [Unknown]
  - Weight decreased [Unknown]
  - Gait disturbance [Unknown]
  - Eye disorder [Unknown]
  - Functional gastrointestinal disorder [Fatal]
  - Constipation [Unknown]
  - Renal failure [Fatal]
  - Seizure [Unknown]
  - Fall [Recovered/Resolved]
  - Screaming [Unknown]
  - Head injury [Recovered/Resolved]
  - Spinal pain [Not Recovered/Not Resolved]
  - Abdominal pain [Recovered/Resolved]
  - Seizure [Unknown]
  - Syncope [Recovered/Resolved]
  - Abdominal infection [Fatal]
  - Vomiting [Unknown]
  - Hypotension [Fatal]
  - Spinal column injury [Unknown]

NARRATIVE: CASE EVENT DATE: 20190501
